FAERS Safety Report 5684570-1 (Version None)
Quarter: 2008Q1

REPORT INFORMATION
  Report Type: 
  Country: None (occurrence: None)
  Receive Date: 20080328
  Receipt Date: 20070228
  Transmission Date: 20080703
  Serious: No
  Sender: FDA-Public Use
  Company Number: US-BRISTOL-MYERS SQUIBB COMPANY-13695598

PATIENT
  Sex: Female
  Weight: 78 kg

DRUGS (1)
  1. ERBITUX [Suspect]
     Dates: start: 20070228, end: 20070228

REACTIONS (3)
  - COUGH [None]
  - RASH MACULAR [None]
  - THROAT IRRITATION [None]
